FAERS Safety Report 6138612-X (Version None)
Quarter: 2009Q1

REPORT INFORMATION
  Report Type: 
  Country: None (occurrence: None)
  Receive Date: 20090331
  Receipt Date: 20090319
  Transmission Date: 20090719
  Serious: Yes (Hospitalization, Other)
  Sender: FDA-Public Use
  Company Number: US-PFIZER INC-2009185339

PATIENT
  Age: 26 Year
  Sex: Female

DRUGS (7)
  1. GABAPENTIN [Suspect]
     Dosage: UNK
     Dates: start: 20090301
  2. DRUG, UNSPECIFIED [Suspect]
     Dosage: UNK
  3. KEPPRA [Suspect]
     Indication: CONVULSION
     Dosage: UNK
  4. ABILIFY [Concomitant]
     Dosage: UNK
  5. PROZAC [Concomitant]
     Dosage: UNK
  6. FLUOXETINE [Concomitant]
     Dosage: UNK
  7. FOLIC ACID [Concomitant]
     Dosage: UNK

REACTIONS (1)
  - CONVULSION [None]
